FAERS Safety Report 25136137 (Version 1)
Quarter: 2025Q1

REPORT INFORMATION
  Report Type: Spontaneous
  Country: TW (occurrence: TW)
  Receive Date: 20250328
  Receipt Date: 20250328
  Transmission Date: 20250409
  Serious: Yes (Hospitalization)
  Sender: BIOMARIN
  Company Number: TW-BIOMARINAP-TW-2025-164867

PATIENT

DRUGS (1)
  1. KUVAN [Suspect]
     Active Substance: SAPROPTERIN DIHYDROCHLORIDE
     Indication: Phenylketonuria
     Dosage: 150 MILLIGRAM, QD
     Route: 048
     Dates: start: 20210823

REACTIONS (5)
  - Respiratory tract infection bacterial [Unknown]
  - Decreased appetite [Unknown]
  - Nasopharyngitis [Unknown]
  - Pyrexia [Unknown]
  - Discomfort [Unknown]

NARRATIVE: CASE EVENT DATE: 20250323
